FAERS Safety Report 9691194 (Version 1)
Quarter: 2013Q4

REPORT INFORMATION
  Report Type: Report from Study
  Country: US (occurrence: US)
  Receive Date: 20131115
  Receipt Date: 20131115
  Transmission Date: 20140711
  Serious: Yes (Other)
  Sender: FDA-Public Use
  Company Number: US-MPIJNJ-2013MPI000901

PATIENT
  Sex: 0

DRUGS (6)
  1. VELCADE [Suspect]
     Indication: WALDENSTROM^S MACROGLOBULINAEMIA
     Dosage: 1.6 MG/M2,ON DAYS 1, 8, 15 EVERY 28 DAYS
     Route: 042
  2. VELCADE [Suspect]
     Dosage: UNK
     Route: 042
  3. EVEROLIMUS [Suspect]
     Indication: WALDENSTROM^S MACROGLOBULINAEMIA
     Dosage: 10 MG, ON DAYS 1, 8, 15 EVERY 28 DAYS
     Route: 048
  4. EVEROLIMUS [Suspect]
     Dosage: UNK
     Route: 048
  5. RITUXIMAB [Suspect]
     Indication: WALDENSTROM^S MACROGLOBULINAEMIA
     Dosage: 375 MG/M2, ON DAYS 1, 8, 15 AND 22 EVERY 28 DAYS
     Route: 042
  6. RITUXIMAB [Suspect]
     Dosage: UNK
     Route: 042

REACTIONS (1)
  - Endocarditis bacterial [Unknown]
